FAERS Safety Report 5850706-2 (Version None)
Quarter: 2008Q3

REPORT INFORMATION
  Report Type: 
  Country: None (occurrence: None)
  Receive Date: 20080818
  Receipt Date: 20080807
  Transmission Date: 20090109
  Serious: Yes (Other)
  Sender: FDA-Public Use
  Company Number: 100#03#2008-03966

PATIENT
  Age: 86 Year
  Sex: Female

DRUGS (11)
  1. ALENDRONIC ACID (ALENDRONIC ACID) [Suspect]
     Indication: OSTEOPOROSIS PROPHYLAXIS
     Dosage: 70 MG ORAL
     Route: 048
     Dates: start: 20080613
  2. ADCAL (CALCIUM CARBONATE) [Concomitant]
  3. ACETYLSALICYLIC ACID SRT [Concomitant]
  4. CHLORPHENAMINE MALEATE (CHLORPHENIRAMINE) [Concomitant]
  5. FRUSEMIDE (FRUSEMIDE) [Concomitant]
  6. LATANOPROST [Concomitant]
  7. LISINOPRIL [Concomitant]
  8. OMEPRAZOLE [Concomitant]
  9. PREDNISONE [Concomitant]
  10. TIMOLOL MALEATE [Concomitant]
  11. UNIVER (MEDRONIC ACID, STANNOUS CHLORIDE ANHYDROUS, VERAPAMIL HYDROCHL [Concomitant]

REACTIONS (1)
  - ATRIAL FIBRILLATION [None]
